FAERS Safety Report 9944424 (Version 1)
Quarter: 2014Q1

REPORT INFORMATION
  Report Type: Report from Study
  Country: US (occurrence: US)
  Receive Date: 20140303
  Receipt Date: 20140303
  Transmission Date: 20141002
  Serious: No
  Sender: FDA-Public Use
  Company Number: US-ABBVIE-13P-163-1048533-00

PATIENT
  Sex: Female

DRUGS (1)
  1. HUMIRA [Suspect]
     Indication: PRODUCT USED FOR UNKNOWN INDICATION
     Dosage: 160 MG ON DAY 1, 80 MG ON DAY 15, 40 MG EVERY OTHER WEEK AFTER THAT
     Route: 058
     Dates: start: 20100215

REACTIONS (1)
  - Pneumonia staphylococcal [Unknown]
